FAERS Safety Report 4944356-X (Version None)
Quarter: 2006Q1

REPORT INFORMATION
  Report Type: 
  Country: None (occurrence: None)
  Receive Date: 20060315
  Receipt Date: 20050930
  Transmission Date: 20060701
  Serious: Yes (Other)
  Sender: FDA-Public Use
  Company Number: US-MERCK-0510USA01232

PATIENT
  Sex: Male
  Weight: 75 kg

DRUGS (1)
  1. VIOXX [Suspect]
     Route: 048
     Dates: start: 19990501, end: 20040930

REACTIONS (6)
  - CARDIOVASCULAR DISORDER [None]
  - CHEST PAIN [None]
  - HEART INJURY [None]
  - MUSCLE CONTRACTURE [None]
  - MYOCARDIAL INFARCTION [None]
  - RENAL DISORDER [None]
